FAERS Safety Report 9831540 (Version 1)
Quarter: 2014Q1

REPORT INFORMATION
  Report Type: Spontaneous
  Country: US (occurrence: US)
  Receive Date: 20140121
  Receipt Date: 20140121
  Transmission Date: 20141002
  Serious: Yes (Hospitalization)
  Sender: FDA-Public Use
  Company Number: US-BAYER-2014-009693

PATIENT
  Age: 34 Year
  Sex: Female
  Weight: 102.95 kg

DRUGS (5)
  1. YASMIN [Suspect]
     Indication: MENSTRUAL DISORDER
  2. YASMIN [Suspect]
     Indication: CONTRACEPTION
  3. ADVIL [Concomitant]
     Dosage: UNK UNK, PRN
  4. ORTHO-NOVUM 1/35 [Concomitant]
  5. SEASONALE [Concomitant]

REACTIONS (3)
  - Cholecystitis chronic [None]
  - Deep vein thrombosis [None]
  - Thrombophlebitis superficial [Recovered/Resolved]
